FAERS Safety Report 5139356-3 (Version None)
Quarter: 2006Q4

REPORT INFORMATION
  Report Type: 
  Country: None (occurrence: None)
  Receive Date: 20061024
  Receipt Date: 20061013
  Transmission Date: 20070319
  Serious: Yes (Hospitalization)
  Sender: FDA-Public Use
  Company Number: 2006AL003168

PATIENT
  Age: 25 Year
  Sex: Male

DRUGS (3)
  1. PHENYTOIN [Suspect]
     Indication: EPILEPSY
     Dosage: 450 MG; QD; PO
     Route: 048
  2. ETHOSUXIMIDE [Concomitant]
  3. CLOBAZAM [Concomitant]

REACTIONS (1)
  - MUSCULAR WEAKNESS [None]
